FAERS Safety Report 23198015 (Version 2)
Quarter: 2024Q3

REPORT INFORMATION
  Report Type: Spontaneous
  Country: US (occurrence: US)
  Receive Date: 20231117
  Receipt Date: 20240809
  Transmission Date: 20241017
  Serious: No
  Sender: SANOFI AVENTIS
  Company Number: US-SA-SAC20231110001054

PATIENT
  Sex: Male
  Weight: 39.9 kg

DRUGS (1)
  1. DUPIXENT [Suspect]
     Active Substance: DUPILUMAB
     Indication: Dermatitis atopic
     Dosage: 200 MG, QOW
     Route: 058
     Dates: start: 202309

REACTIONS (3)
  - Injection site pain [Recovering/Resolving]
  - Dermatitis atopic [Recovering/Resolving]
  - Therapeutic response decreased [Unknown]
